FAERS Safety Report 10654131 (Version 1)
Quarter: 2014Q4

REPORT INFORMATION
  Report Type: Spontaneous
  Country: HR (occurrence: HR)
  Receive Date: 20141216
  Receipt Date: 20141216
  Transmission Date: 20150529
  Serious: Yes (Life-Threatening)
  Sender: FDA-Public Use
  Company Number: PHHY2014HR163093

PATIENT

DRUGS (6)
  1. AMIODARON//AMIODARONE [Concomitant]
     Indication: PRODUCT USED FOR UNKNOWN INDICATION
     Route: 048
  2. LACIPIL [Concomitant]
     Active Substance: LACIDIPINE
     Indication: PRODUCT USED FOR UNKNOWN INDICATION
     Route: 048
  3. ISMN JADRAN [Suspect]
     Active Substance: ISOSORBIDE MONONITRATE
     Indication: CORONARY ANGIOPLASTY
     Dosage: 1 DF, BID
     Route: 048
     Dates: start: 20141125
  4. EXFORGE HCT [Suspect]
     Active Substance: AMLODIPINE BESYLATE\HYDROCHLOROTHIAZIDE\VALSARTAN
     Indication: ESSENTIAL HYPERTENSION
     Dosage: 1 DF, QD (5 MG AMLODIPIN ,160 MG VALSARTAN AND 12.5 MG HYDROCHLOROTHIAZIDE)
     Route: 048
     Dates: start: 20141125
  5. KOGREL [Concomitant]
     Indication: PRODUCT USED FOR UNKNOWN INDICATION
     Route: 065
  6. BISOBEL [Concomitant]
     Indication: PRODUCT USED FOR UNKNOWN INDICATION
     Route: 048

REACTIONS (5)
  - Blood pressure decreased [Recovering/Resolving]
  - Loss of consciousness [Recovering/Resolving]
  - Pallor [Recovering/Resolving]
  - Foaming at mouth [Recovering/Resolving]
  - Hyperhidrosis [Recovering/Resolving]

NARRATIVE: CASE EVENT DATE: 20141125
